FAERS Safety Report 6753875-5 (Version None)
Quarter: 2010Q2

REPORT INFORMATION
  Report Type: 
  Country: None (occurrence: None)
  Receive Date: 20100603
  Receipt Date: 20100527
  Transmission Date: 20101027
  Serious: Yes (Other)
  Sender: FDA-Public Use
  Company Number: A0861658A

PATIENT
  Age: 54 Year
  Sex: Female

DRUGS (4)
  1. ALLI [Suspect]
     Indication: WEIGHT LOSS DIET
     Route: 048
  2. AVALIDE [Concomitant]
     Route: 048
  3. NORVASC [Concomitant]
     Route: 048
  4. XALATAN [Concomitant]
     Indication: GLAUCOMA
     Route: 047

REACTIONS (6)
  - ABASIA [None]
  - ARTHRALGIA [None]
  - CHROMATURIA [None]
  - HEPATIC ENZYME INCREASED [None]
  - MALAISE [None]
  - PAIN [None]
